FAERS Safety Report 5427337-1 (Version None)
Quarter: 2007Q3

REPORT INFORMATION
  Report Type: 
  Country: None (occurrence: None)
  Receive Date: 20070828
  Receipt Date: 20070820
  Transmission Date: 20080115
  Serious: Yes (Life-Threatening, Hospitalization)
  Sender: FDA-Public Use
  Company Number: HQWYE869302JUL07

PATIENT
  Sex: Male

DRUGS (4)
  1. CORDARONE [Suspect]
     Indication: ARRHYTHMIA
     Route: 048
     Dates: start: 20020501, end: 20070525
  2. TAHOR [Concomitant]
     Route: 048
     Dates: start: 20020101
  3. PERINDOPRIL ERBUMINE [Concomitant]
     Indication: HYPERTENSION
     Route: 048
     Dates: start: 20020101
  4. KARDEGIC [Concomitant]
     Indication: ANTIPLATELET THERAPY
     Dosage: UNSPECIFIED
     Route: 048
     Dates: start: 20020101, end: 20070101

REACTIONS (6)
  - ANAEMIA HAEMOLYTIC AUTOIMMUNE [None]
  - ASTHENIA [None]
  - PULMONARY FIBROSIS [None]
  - SOMNOLENCE [None]
  - THYROID DISORDER [None]
  - WEIGHT DECREASED [None]
